FAERS Safety Report 7595912-4 (Version None)
Quarter: 2011Q3

REPORT INFORMATION
  Report Type: 
  Country: None (occurrence: None)
  Receive Date: 20110707
  Receipt Date: 20110629
  Transmission Date: 20111222
  Serious: Yes (Hospitalization)
  Sender: FDA-Public Use
  Company Number: US-B.I. PHARMACEUTICALS,INC./RIDGEFIELD-2011-BP-15353BP

PATIENT
  Age: 55 Year
  Sex: Male
  Weight: 171.91 kg

DRUGS (9)
  1. PRADAXA [Suspect]
     Indication: ATRIAL FIBRILLATION
     Dosage: 300 MG
     Dates: start: 20110429
  2. PRAVACHOL [Concomitant]
     Route: 048
  3. DIOVAN [Concomitant]
     Route: 048
  4. PRILOSEC [Concomitant]
     Route: 048
  5. TESTOSTERONE [Concomitant]
  6. NORCO [Concomitant]
     Route: 048
  7. COREG [Concomitant]
     Route: 048
  8. ASPIRIN [Concomitant]
     Route: 048
  9. VICTOZA [Concomitant]

REACTIONS (1)
  - TRANSIENT ISCHAEMIC ATTACK [None]
